FAERS Safety Report 8274916-2 (Version None)
Quarter: 2012Q2

REPORT INFORMATION
  Report Type: 
  Country: None (occurrence: None)
  Receive Date: 20120411
  Receipt Date: 20120411
  Transmission Date: 20120825
  Serious: Yes (Other)
  Sender: FDA-Public Use
  Company Number: GB-JNJFOC-20120403310

PATIENT

DRUGS (32)
  1. PROCARBAZINE HYDROCHLORIDE [Suspect]
     Route: 048
  2. PREDNISOLONE [Suspect]
     Indication: HODGKIN'S DISEASE
     Route: 048
  3. PREDNISOLONE [Suspect]
     Route: 048
  4. DOXORUBICIN HCL [Suspect]
     Indication: HODGKIN'S DISEASE
     Route: 042
  5. VINCRISTINE [Suspect]
     Route: 042
  6. DACARBAZINE [Suspect]
     Indication: HODGKIN'S DISEASE
     Route: 042
  7. VINBLASTINE SULFATE [Suspect]
     Indication: HODGKIN'S DISEASE
     Route: 042
  8. VINBLASTINE SULFATE [Suspect]
     Route: 042
  9. PREDNISOLONE [Suspect]
     Route: 048
  10. BLEOMYCIN SULFATE [Suspect]
     Route: 042
  11. VINCRISTINE [Suspect]
     Route: 042
  12. VINCRISTINE [Suspect]
     Route: 042
  13. DACARBAZINE [Suspect]
     Route: 042
  14. DOXORUBICIN HCL [Suspect]
     Route: 042
  15. DOXORUBICIN HCL [Suspect]
     Route: 042
  16. BLEOMYCIN SULFATE [Suspect]
     Indication: HODGKIN'S DISEASE
     Route: 042
  17. BLEOMYCIN SULFATE [Suspect]
     Route: 042
  18. DACARBAZINE [Suspect]
     Route: 042
  19. CHLORAMBUCIL [Suspect]
     Route: 048
  20. CHLORAMBUCIL [Suspect]
     Route: 048
  21. DOXORUBICIN HCL [Suspect]
     Route: 042
  22. VINCRISTINE [Suspect]
     Indication: HODGKIN'S DISEASE
     Route: 042
  23. PROCARBAZINE HYDROCHLORIDE [Suspect]
     Indication: HODGKIN'S DISEASE
     Route: 048
  24. BLEOMYCIN SULFATE [Suspect]
     Route: 042
  25. DACARBAZINE [Suspect]
     Route: 042
  26. CHLORAMBUCIL [Suspect]
     Indication: HODGKIN'S DISEASE
     Route: 048
  27. CHLORAMBUCIL [Suspect]
     Route: 048
  28. VINBLASTINE SULFATE [Suspect]
     Route: 042
  29. VINBLASTINE SULFATE [Suspect]
     Route: 042
  30. PROCARBAZINE HYDROCHLORIDE [Suspect]
     Route: 048
  31. PROCARBAZINE HYDROCHLORIDE [Suspect]
     Route: 048
  32. PREDNISOLONE [Suspect]
     Route: 048

REACTIONS (1)
  - DIFFUSE LARGE B-CELL LYMPHOMA [None]
